FAERS Safety Report 7068752-2 (Version None)
Quarter: 2010Q4

REPORT INFORMATION
  Report Type: 
  Country: None (occurrence: None)
  Receive Date: 20101028
  Receipt Date: 20101025
  Transmission Date: 20110411
  Serious: Yes (Hospitalization)
  Sender: FDA-Public Use
  Company Number: FR-PFIZER INC-2010127200

PATIENT
  Age: 73 Year
  Sex: Male

DRUGS (5)
  1. AMLOR [Suspect]
     Dosage: UNK
     Dates: start: 20100923, end: 20100930
  2. MIMPARA [Suspect]
     Dosage: UNK
     Dates: start: 20100924, end: 20100930
  3. IMUREL [Suspect]
     Dosage: UNK
     Dates: start: 20100924, end: 20100926
  4. CLAMOXYL [Suspect]
     Dosage: UNK
     Dates: start: 20100927
  5. FLAGYL [Suspect]
     Indication: PYREXIA
     Dosage: UNK
     Dates: start: 20100927

REACTIONS (1)
  - NEUTROPENIA [None]
